FAERS Safety Report 10082851 (Version 4)
Quarter: 2014Q2

REPORT INFORMATION
  Report Type: Report from Study
  Country: BD (occurrence: BD)
  Receive Date: 20140416
  Receipt Date: 20140521
  Transmission Date: 20141212
  Serious: Yes (Other)
  Sender: FDA-Public Use
  Company Number: PHHY2014BD030641

PATIENT
  Age: 51 Year
  Sex: Female

DRUGS (5)
  1. ACLASTA [Suspect]
     Indication: OSTEOPOROSIS
     Dosage: ONCE YEARLY
     Route: 042
     Dates: start: 20121112
  2. ACLASTA [Suspect]
     Dosage: ONCE YEARLY
     Route: 042
     Dates: start: 20131123
  3. NAPROSYN [Concomitant]
     Indication: PAIN
     Dosage: UNK UKN, BID
     Route: 048
     Dates: start: 20120205, end: 20130210
  4. PREGABALIN [Concomitant]
     Indication: PAIN
     Dosage: 1 DF, ONCE DAILY
     Route: 048
     Dates: start: 20121005, end: 20130210
  5. ANTIHYPERTENSIVES [Concomitant]
     Indication: HYPERTENSION
     Dosage: UNK UKN, BID
     Route: 048
     Dates: start: 20121005, end: 20130210

REACTIONS (3)
  - Renal disorder [Unknown]
  - Fluid overload [Not Recovered/Not Resolved]
  - Mobility decreased [Unknown]
